FAERS Safety Report 6696642-3 (Version None)
Quarter: 2010Q2

REPORT INFORMATION
  Report Type: 
  Country: None (occurrence: None)
  Receive Date: 20100426
  Receipt Date: 20100420
  Transmission Date: 20101027
  Serious: Yes (Hospitalization)
  Sender: FDA-Public Use
  Company Number: US-GILEAD-2010-0028672

PATIENT
  Sex: Female

DRUGS (18)
  1. LETAIRIS [Suspect]
     Indication: PULMONARY ARTERIAL HYPERTENSION
     Route: 048
     Dates: start: 20100323, end: 20100416
  2. WARFARIN SODIUM [Concomitant]
  3. FUROSEMIDE [Concomitant]
  4. SPIRONOLACTONE [Concomitant]
  5. BUDESONIDE [Concomitant]
  6. XOPENEX [Concomitant]
  7. MUCINEX [Concomitant]
  8. PRAVASTATIN [Concomitant]
  9. SULFAMETHOXAZOLE [Concomitant]
  10. OXYCODONE [Concomitant]
  11. TYLENOL-500 [Concomitant]
  12. AZATHIOPRINE [Concomitant]
  13. GLIPIZIDE [Concomitant]
  14. METFORMIN [Concomitant]
  15. DIGOXIN [Concomitant]
  16. LORAZEPAM [Concomitant]
  17. PAROXETINE HCL [Concomitant]
  18. KLOR-CON [Concomitant]

REACTIONS (4)
  - ABDOMINAL PAIN UPPER [None]
  - HEADACHE [None]
  - OEDEMA PERIPHERAL [None]
  - OXYGEN SATURATION DECREASED [None]
